FAERS Safety Report 9837965 (Version 1)
Quarter: 2013Q4

REPORT INFORMATION
  Report Type: Spontaneous
  Country: US (occurrence: None)
  Receive Date: 20131205
  Receipt Date: 20131205
  Transmission Date: 20140711
  Serious: Yes (Hospitalization)
  Sender: FDA-Public Use
  Company Number: 163-POMAL-13094607

PATIENT
  Age: 82 Year
  Sex: Male
  Weight: 77.1 kg

DRUGS (1)
  1. POMALYST [Suspect]
     Indication: PLASMA CELL MYELOMA
     Dosage: 21 IN 28 D, TEMPORARILY INTERRUPTED
     Route: 048
     Dates: start: 201308

REACTIONS (1)
  - Pneumonia [None]
